FAERS Safety Report 7376653-5 (Version None)
Quarter: 2011Q1

REPORT INFORMATION
  Report Type: 
  Country: None (occurrence: None)
  Receive Date: 20110325
  Receipt Date: 20110322
  Transmission Date: 20110831
  Serious: Yes (Other)
  Sender: FDA-Public Use
  Company Number: US-ABBOTT-11P-163-0713850-00

PATIENT
  Sex: Female
  Weight: 91.708 kg

DRUGS (7)
  1. HUMIRA [Suspect]
     Indication: JUVENILE ARTHRITIS
     Dates: start: 20100901, end: 20101201
  2. DILAUDID [Concomitant]
     Indication: PAIN
  3. DIAZEPAM [Concomitant]
     Indication: ANXIETY
  4. OXYCODONE [Concomitant]
     Indication: PAIN
  5. WELLBUTRIN [Concomitant]
     Indication: AFFECTIVE DISORDER
  6. TRILEPTAL [Concomitant]
     Indication: AFFECTIVE DISORDER
  7. HUMIRA [Suspect]
     Dates: start: 20110301

REACTIONS (3)
  - DYSPNOEA [None]
  - PARANASAL CYST [None]
  - FACIAL PAIN [None]
